FAERS Safety Report 7669235-9 (Version None)
Quarter: 2011Q3

REPORT INFORMATION
  Report Type: 
  Country: None (occurrence: None)
  Receive Date: 20110808
  Receipt Date: 20110729
  Transmission Date: 20111222
  Serious: Yes (Other)
  Sender: FDA-Public Use
  Company Number: PHEH2009US13747

PATIENT
  Sex: Female

DRUGS (6)
  1. LISINOPRIL [Concomitant]
  2. TYKERB [Concomitant]
  3. HYDROCHLOROTHIAZIDE [Concomitant]
  4. ZOMETA [Suspect]
     Indication: METASTASES TO BONE
     Dosage: 1 DF, QMO
     Route: 042
     Dates: start: 20030101
  5. XELODA [Concomitant]
  6. CLINDAMYCIN [Concomitant]

REACTIONS (12)
  - INJURY [None]
  - PAIN [None]
  - ANXIETY [None]
  - EXPOSED BONE IN JAW [None]
  - OSTEOMYELITIS [None]
  - HYPERTENSION [None]
  - ANHEDONIA [None]
  - HYPOAESTHESIA [None]
  - STOMATITIS [None]
  - INFECTION [None]
  - OSTEONECROSIS OF JAW [None]
  - IMPAIRED HEALING [None]
